FAERS Safety Report 7584496-2 (Version None)
Quarter: 2011Q2

REPORT INFORMATION
  Report Type: 
  Country: None (occurrence: None)
  Receive Date: 20110630
  Receipt Date: 20110621
  Transmission Date: 20111010
  Serious: Yes (Hospitalization, Other)
  Sender: FDA-Public Use
  Company Number: TW-PFIZER INC-2011143572

PATIENT
  Age: 74 Year
  Sex: Female

DRUGS (5)
  1. INSULIN [Concomitant]
     Indication: DIABETES MELLITUS
     Route: 058
  2. METOPROLOL [Concomitant]
     Dosage: 25 MG, UNK
  3. VALSARTAN [Concomitant]
     Dosage: 160 MG, UNK
  4. SERTRALINE HYDROCHLORIDE [Suspect]
     Indication: MAJOR DEPRESSION
     Dosage: 50 MG, UNK
  5. ISOSORBIDE [Concomitant]
     Dosage: 40 MG, UNK

REACTIONS (2)
  - MANIA [None]
  - WITHDRAWAL SYNDROME [None]
